FAERS Safety Report 5042062-7 (Version None)
Quarter: 2006Q2

REPORT INFORMATION
  Report Type: 
  Country: None (occurrence: None)
  Receive Date: 20060627
  Receipt Date: 20060615
  Transmission Date: 20061013
  Serious: Yes (Hospitalization)
  Sender: FDA-Public Use
  Company Number: 2006BI006837

PATIENT
  Age: 53 Year
  Sex: Female

DRUGS (5)
  1. AVONEX [Suspect]
     Indication: MULTIPLE SCLEROSIS
     Dosage: 30 UG; QW; IM
     Route: 030
     Dates: start: 19960701, end: 20020101
  2. AVONEX [Suspect]
     Indication: MULTIPLE SCLEROSIS
     Dates: start: 20050101
  3. FOSAMAX [Concomitant]
  4. PROZAC [Concomitant]
  5. CLORAZEPATE [Concomitant]

REACTIONS (3)
  - ANOREXIA [None]
  - DEPRESSION [None]
  - FALL [None]
